APPROVED DRUG PRODUCT: FLUOXETINE HYDROCHLORIDE
Active Ingredient: FLUOXETINE HYDROCHLORIDE
Strength: EQ 90MG BASE
Dosage Form/Route: CAPSULE, DELAYED REL PELLETS;ORAL
Application: A076237 | Product #001
Applicant: BARR LABORATORIES INC
Approved: Mar 24, 2010 | RLD: No | RS: No | Type: DISCN